FAERS Safety Report 23270098 (Version 1)
Quarter: 2023Q4

REPORT INFORMATION
  Report Type: Spontaneous
  Country: CZ (occurrence: None)
  Receive Date: 20231207
  Receipt Date: 20231207
  Transmission Date: 20240109
  Serious: Yes (Hospitalization)
  Sender: FDA-Public Use
  Company Number: CZ-ROCHE-3466032

PATIENT
  Age: 50 Year
  Sex: Male

DRUGS (1)
  1. OCREVUS [Suspect]
     Active Substance: OCRELIZUMAB
     Indication: Product used for unknown indication
     Dosage: LAST INFUSION IN FEB/2023
     Route: 065

REACTIONS (4)
  - Pulmonary embolism [Unknown]
  - Interstitial lung disease [Unknown]
  - Haematemesis [Unknown]
  - Ulcer [Unknown]

NARRATIVE: CASE EVENT DATE: 20230501
